FAERS Safety Report 8905178 (Version 1)
Quarter: 2012Q4

REPORT INFORMATION
  Report Type: 
  Country: CA (occurrence: CA)
  Receive Date: 20121111
  Receipt Date: 20121111
  Transmission Date: 20130627
  Serious: Yes (Other)
  Sender: FDA-Public Use
  Company Number: PHMT2006CA01364

PATIENT
  Sex: Female

DRUGS (4)
  1. SANDOSTATIN LAR [Suspect]
     Indication: CARCINOID TUMOUR
     Dosage: 20 mg, QMO
     Dates: start: 20040822
  2. SANDOSTATIN LAR [Suspect]
     Dosage: 30 mg, ONCE/SINGLE
     Route: 030
     Dates: start: 20060524, end: 20060524
  3. LOSEC                                   /CAN/ [Concomitant]
  4. IRON [Concomitant]

REACTIONS (4)
  - Cataract [Unknown]
  - Incorrect dose administered [Unknown]
  - Malaise [Unknown]
  - Diarrhoea [Unknown]
